FAERS Safety Report 17321984 (Version 1)
Quarter: 2020Q1

REPORT INFORMATION
  Report Type: Report from Study
  Country: IT (occurrence: IT)
  Receive Date: 20200127
  Receipt Date: 20200127
  Transmission Date: 20200409
  Serious: Yes (Life-Threatening)
  Sender: FDA-Public Use
  Company Number: IT-ACCORD-169453

PATIENT
  Age: 77 Year
  Sex: Male
  Weight: 65 kg

DRUGS (11)
  1. DAPTOMYCIN. [Concomitant]
     Active Substance: DAPTOMYCIN
  2. CLINDAMYCIN. [Concomitant]
     Active Substance: CLINDAMYCIN
  3. TAZOCIN [Concomitant]
     Active Substance: PIPERACILLIN SODIUM\TAZOBACTAM SODIUM
  4. FECTADOL [Concomitant]
  5. GLYCERYL TRINITRATE [Concomitant]
     Active Substance: NITROGLYCERIN
  6. ALBUMIN HUMAN [Concomitant]
     Active Substance: ALBUMIN HUMAN
  7. DOXAZOSIN [Concomitant]
     Active Substance: DOXAZOSIN MESYLATE
     Route: 048
  8. LASIX [Concomitant]
     Active Substance: FUROSEMIDE
  9. RIFAMPICIN [Concomitant]
     Active Substance: RIFAMPIN
  10. SELOKEN [Concomitant]
     Active Substance: METOPROLOL
  11. ALLOPURINOL. [Suspect]
     Active Substance: ALLOPURINOL
     Indication: HYPERURICAEMIA

REACTIONS (6)
  - Stevens-Johnson syndrome [Unknown]
  - Renal failure [Unknown]
  - Pneumonitis [Unknown]
  - Skin exfoliation [Unknown]
  - Pyrexia [Unknown]
  - Pruritus [Unknown]

NARRATIVE: CASE EVENT DATE: 20191130
